FAERS Safety Report 20061515 (Version 1)
Quarter: 2021Q4

REPORT INFORMATION
  Report Type: Report from Study
  Country: US (occurrence: US)
  Receive Date: 20211112
  Receipt Date: 20211112
  Transmission Date: 20220303
  Serious: Yes (Other)
  Sender: FDA-Public Use
  Company Number: US-NOVARTISPH-NVSC2021US253162

PATIENT
  Sex: Female

DRUGS (1)
  1. ENTRESTO [Suspect]
     Active Substance: SACUBITRIL\VALSARTAN
     Indication: Cardiac failure congestive
     Dosage: UNK(24/26MG AM 49/51PM)
     Route: 048

REACTIONS (3)
  - Respiratory tract infection [Unknown]
  - Angina pectoris [Recovered/Resolved]
  - Heart rate increased [Unknown]
